FAERS Safety Report 19376810 (Version 1)
Quarter: 2021Q2

REPORT INFORMATION
  Report Type: Report from Study
  Country: DE (occurrence: DE)
  Receive Date: 20210605
  Receipt Date: 20210605
  Transmission Date: 20210717
  Serious: Yes (Hospitalization, Other)
  Sender: FDA-Public Use
  Company Number: DE-CELLTRION INC.-2021DE007507

PATIENT

DRUGS (1)
  1. TRUXIMA [Suspect]
     Active Substance: RITUXIMAB-ABBS
     Indication: PRODUCT USED FOR UNKNOWN INDICATION

REACTIONS (9)
  - Febrile neutropenia [Recovered/Resolved]
  - Device related infection [Unknown]
  - Drug eruption [Unknown]
  - Pollakiuria [Recovered/Resolved]
  - Pruritus [Unknown]
  - Immunosuppression [Unknown]
  - Anaemia [Recovered/Resolved]
  - Fungal infection [Recovered/Resolved]
  - Hyperglycaemia [Unknown]

NARRATIVE: CASE EVENT DATE: 20190412
